FAERS Safety Report 4311155-1 (Version None)
Quarter: 2004Q1

REPORT INFORMATION
  Report Type: 
  Country: None (occurrence: None)
  Receive Date: 20040302
  Receipt Date: 20040217
  Transmission Date: 20041129
  Serious: Yes (Hospitalization)
  Sender: FDA-Public Use
  Company Number: 2003UW13875

PATIENT
  Age: 19 Year
  Sex: Male
  Weight: 60.782 kg

DRUGS (4)
  1. RISPERIDONE [Suspect]
     Indication: SCHIZOPHRENIA
     Dosage: TITRATION
     Dates: start: 20030930, end: 20031007
  2. RISPERIDONE [Suspect]
     Indication: SCHIZOPHRENIA
     Dosage: 4 CAPS
     Dates: start: 20031007, end: 20031009
  3. RISPERIDONE [Suspect]
     Indication: SCHIZOPHRENIA
     Dosage: 6 CAPS
     Dates: start: 20031009, end: 20031016
  4. ZYPREXA [Concomitant]

REACTIONS (2)
  - NEUTROPENIA [None]
  - WHITE BLOOD CELL COUNT DECREASED [None]
